FAERS Safety Report 4713518-9 (Version None)
Quarter: 2005Q3

REPORT INFORMATION
  Report Type: 
  Country: None (occurrence: None)
  Receive Date: 20050711
  Receipt Date: 20050629
  Transmission Date: 20060218
  Serious: Yes (Other)
  Sender: FDA-Public Use
  Company Number: 2005056563

PATIENT
  Age: 55 Year
  Sex: Male
  Weight: 104.3273 kg

DRUGS (4)
  1. ATORVASTATIN CALCIUM [Suspect]
     Indication: BLOOD CHOLESTEROL INCREASED
     Dosage: 20 MG (20 MG, 1 IN 1 D), ORAL
     Route: 048
     Dates: start: 20040209
  2. LIPIDIL SUPRA (FENOFIBRATE) [Suspect]
     Indication: BLOOD TRIGLYCERIDES DECREASED
     Dosage: 160 MG (160 MG, DAILY), ORAL
     Route: 048
     Dates: start: 20040218, end: 20050510
  3. SYMBICORT (BUDESONIDE, FORMOTEROL FUMARATE) [Concomitant]
  4. ALBUTEROL SULFATE HFA [Concomitant]

REACTIONS (11)
  - ASTHENIA [None]
  - BLOOD TRIGLYCERIDES ABNORMAL [None]
  - DISCOMFORT [None]
  - DRUG INTERACTION [None]
  - DYSPNOEA [None]
  - FATIGUE [None]
  - MALAISE [None]
  - MUSCLE SPASMS [None]
  - MYALGIA [None]
  - MYOCARDIAL INFARCTION [None]
  - PAIN [None]
